FAERS Safety Report 6429566-7 (Version None)
Quarter: 2009Q4

REPORT INFORMATION
  Report Type: 
  Country: None (occurrence: None)
  Receive Date: 20091103
  Receipt Date: 20091029
  Transmission Date: 20100525
  Serious: Yes (Death, Hospitalization, Other)
  Sender: FDA-Public Use
  Company Number: 231933J09USA

PATIENT
  Age: 58 Year
  Sex: Female

DRUGS (10)
  1. REBIF [Suspect]
     Indication: MULTIPLE SCLEROSIS
     Dosage: 44 MCG, 3 IN 1 WEEKS, SUBCUTANEOUS
     Route: 058
     Dates: start: 20030416, end: 20090814
  2. BACLOFEN [Concomitant]
  3. FLEXERIL [Concomitant]
  4. EMLA CREAM (EMLA) [Concomitant]
  5. VITAMIN B12 (HYDROXOCOBALAMIN) [Concomitant]
  6. LOPRESSOR  (METOPROLOT TARTRATE) [Concomitant]
  7. ASPIRIN [Concomitant]
  8. EFFEXOR [Concomitant]
  9. BUMEX [Concomitant]
  10. FENTANYL [Concomitant]

REACTIONS (7)
  - CARDIAC FAILURE CONGESTIVE [None]
  - CELLULITIS [None]
  - LUNG NEOPLASM MALIGNANT [None]
  - MUSCLE SPASMS [None]
  - OEDEMA PERIPHERAL [None]
  - PAIN IN EXTREMITY [None]
  - WOUND [None]
